FAERS Safety Report 13900042 (Version 2)
Quarter: 2017Q4

REPORT INFORMATION
  Report Type: Report from Study
  Country: CA (occurrence: CA)
  Receive Date: 20170824
  Receipt Date: 20171018
  Transmission Date: 20180320
  Serious: No
  Sender: FDA-Public Use
  Company Number: CA-SA-2016SA231520

PATIENT
  Age: 47 Year
  Sex: Female

DRUGS (9)
  1. GRAVOL [Concomitant]
     Active Substance: DIMENHYDRINATE
     Indication: PREMEDICATION
     Route: 048
     Dates: start: 20161212
  2. ACETAMINOPHEN. [Concomitant]
     Active Substance: ACETAMINOPHEN
     Indication: PREMEDICATION
     Dosage: DOSE: 500 MG-1 G
     Route: 048
     Dates: start: 20161212, end: 20161216
  3. LEMTRADA [Suspect]
     Active Substance: ALEMTUZUMAB
     Indication: RELAPSING-REMITTING MULTIPLE SCLEROSIS
     Route: 041
     Dates: start: 20161212, end: 20161216
  4. LEMTRADA [Suspect]
     Active Substance: ALEMTUZUMAB
     Indication: RELAPSING-REMITTING MULTIPLE SCLEROSIS
     Route: 041
     Dates: start: 20161212, end: 20161216
  5. LEMTRADA [Suspect]
     Active Substance: ALEMTUZUMAB
     Indication: RELAPSING-REMITTING MULTIPLE SCLEROSIS
     Route: 041
     Dates: start: 20161212, end: 20161212
  6. LEMTRADA [Suspect]
     Active Substance: ALEMTUZUMAB
     Indication: RELAPSING-REMITTING MULTIPLE SCLEROSIS
     Route: 041
     Dates: start: 20161212, end: 20161212
  7. METHYLPREDNISOLONE. [Suspect]
     Active Substance: METHYLPREDNISOLONE
     Indication: PREMEDICATION
     Route: 042
     Dates: start: 20161212, end: 20161214
  8. BENADRYL [Concomitant]
     Active Substance: DIPHENHYDRAMINE HYDROCHLORIDE
     Indication: PREMEDICATION
     Route: 048
     Dates: start: 20161212, end: 20161216
  9. ACYCLOVIR. [Concomitant]
     Active Substance: ACYCLOVIR
     Indication: PREMEDICATION
     Route: 048
     Dates: start: 20161212

REACTIONS (18)
  - Gallbladder pain [Recovered/Resolved]
  - Headache [Recovered/Resolved]
  - Influenza like illness [Recovering/Resolving]
  - Muscular weakness [Not Recovered/Not Resolved]
  - Bone pain [Recovered/Resolved]
  - Fatigue [Recovering/Resolving]
  - Musculoskeletal disorder [Not Recovered/Not Resolved]
  - Band sensation [Recovered/Resolved]
  - Ill-defined disorder [Unknown]
  - Chills [Recovered/Resolved]
  - Flushing [Recovered/Resolved]
  - Insomnia [Recovering/Resolving]
  - Mobility decreased [Recovering/Resolving]
  - Nausea [Recovered/Resolved]
  - Pain [Recovered/Resolved]
  - Blood pressure increased [Recovered/Resolved]
  - Abdominal pain [Recovered/Resolved]
  - Vision blurred [Recovered/Resolved]

NARRATIVE: CASE EVENT DATE: 2016
